FAERS Safety Report 14469758 (Version 1)
Quarter: 2018Q1

REPORT INFORMATION
  Report Type: Spontaneous
  Country: FR (occurrence: FR)
  Receive Date: 20180131
  Receipt Date: 20180131
  Transmission Date: 20180509
  Serious: Yes (Death, Hospitalization)
  Sender: FDA-Public Use
  Company Number: FR-ELI_LILLY_AND_COMPANY-FR201801012515

PATIENT
  Age: 19 Year
  Sex: Female

DRUGS (11)
  1. ZYPREXA [Suspect]
     Active Substance: OLANZAPINE
     Indication: PSYCHIATRIC DECOMPENSATION
     Dosage: UNK UNK, UNKNOWN
     Route: 048
     Dates: start: 20171220, end: 20171227
  2. STILNOX [Suspect]
     Active Substance: ZOLPIDEM TARTRATE
     Indication: PSYCHIATRIC DECOMPENSATION
     Dosage: UNK UNK, UNKNOWN
     Route: 048
     Dates: start: 20171219, end: 20171227
  3. FLUANXOL                           /00109702/ [Suspect]
     Active Substance: FLUPENTIXOL
     Indication: PSYCHIATRIC DECOMPENSATION
     Dosage: UNK UNK, UNKNOWN
     Route: 048
     Dates: start: 20171219, end: 20171227
  4. DEPAKINE                           /00228501/ [Suspect]
     Active Substance: VALPROIC ACID
     Indication: PSYCHIATRIC DECOMPENSATION
     Dosage: UNK UNK, UNKNOWN
     Route: 048
     Dates: start: 20171220, end: 20171223
  5. ASCABIOL                           /00356101/ [Concomitant]
     Dosage: 1 DF, UNKNOWN
     Route: 003
     Dates: start: 20171219, end: 20171219
  6. LOXAPAC                            /00401801/ [Concomitant]
     Active Substance: LOXAPINE
     Dosage: 4 DF, UNKNOWN
     Route: 030
     Dates: start: 20171219, end: 20171219
  7. ABILIFY MAINTENA [Suspect]
     Active Substance: ARIPIPRAZOLE
     Indication: PSYCHIATRIC DECOMPENSATION
     Dosage: 1 DF, UNKNOWN
     Route: 030
     Dates: start: 20171206, end: 20171206
  8. IMODIUM [Concomitant]
     Active Substance: LOPERAMIDE HYDROCHLORIDE
     Dosage: 2 DF, DAILY
     Route: 048
     Dates: start: 20171220, end: 20171220
  9. SPREGAL                            /01095501/ [Concomitant]
     Dosage: 1 DF, UNKNOWN
     Route: 003
     Dates: start: 20171219, end: 20171219
  10. THERALENE [Suspect]
     Active Substance: TRIMEPRAZINE
     Indication: PSYCHIATRIC DECOMPENSATION
     Dosage: UNK UNK, UNKNOWN
     Route: 048
     Dates: start: 20171219, end: 20171227
  11. VALIUM [Suspect]
     Active Substance: DIAZEPAM
     Indication: PSYCHIATRIC DECOMPENSATION
     Dosage: UNK UNK, UNKNOWN
     Route: 048
     Dates: start: 20171219, end: 20171227

REACTIONS (1)
  - Cardio-respiratory arrest [Fatal]

NARRATIVE: CASE EVENT DATE: 20171227
